FAERS Safety Report 8596200-X (Version None)
Quarter: 2012Q3

REPORT INFORMATION
  Report Type: 
  Country: None (occurrence: None)
  Receive Date: 20120815
  Receipt Date: 20120807
  Transmission Date: 20120928
  Serious: Yes (Hospitalization)
  Sender: FDA-Public Use
  Company Number: FR-GLAXOSMITHKLINE-B0486940A

PATIENT
  Age: 83 Year
  Sex: Male

DRUGS (7)
  1. FUCIDINE CAP [Concomitant]
     Route: 065
  2. CEFUROXIME [Suspect]
     Indication: BRONCHITIS
     Route: 048
     Dates: start: 20070227, end: 20070305
  3. BIOCALYPTOL [Suspect]
     Indication: COUGH
     Route: 048
     Dates: start: 20070227, end: 20070305
  4. CRESTOR [Concomitant]
     Route: 065
  5. INDAPAMIDE [Concomitant]
     Route: 065
  6. ASPIRIN [Concomitant]
     Route: 065
  7. LERCANIDIPINE [Concomitant]
     Route: 065

REACTIONS (5)
  - RASH PAPULAR [None]
  - SKIN EXFOLIATION [None]
  - ERYTHEMA [None]
  - RASH GENERALISED [None]
  - TOXIC SKIN ERUPTION [None]
